FAERS Safety Report 7973882-4 (Version None)
Quarter: 2011Q4

REPORT INFORMATION
  Report Type: 
  Country: None (occurrence: None)
  Receive Date: 20111213
  Receipt Date: 20111208
  Transmission Date: 20120403
  Serious: Yes (Hospitalization)
  Sender: FDA-Public Use
  Company Number: US-SHIRE-ALL1-2011-04856

PATIENT
  Sex: Female
  Weight: 79.365 kg

DRUGS (1)
  1. PENTASA [Suspect]
     Indication: CROHN'S DISEASE
     Dosage: 1500 MG, 2X/DAY:BID (THREE 500 MG CAPSULES TWICE DAILY)
     Route: 048
     Dates: start: 20101201, end: 20110710

REACTIONS (5)
  - OFF LABEL USE [None]
  - GAIT DISTURBANCE [None]
  - PNEUMONIA VIRAL [None]
  - LYMPHADENOPATHY [None]
  - ABNORMAL LOSS OF WEIGHT [None]
